FAERS Safety Report 9580288 (Version 1)
Quarter: 2013Q3

REPORT INFORMATION
  Report Type: Spontaneous
  Country: US (occurrence: None)
  Receive Date: 20130916
  Receipt Date: 20130916
  Transmission Date: 20140515
  Serious: Yes (Other)
  Sender: FDA-Public Use
  Company Number: JPI-P-032946

PATIENT
  Age: 35 Year
  Sex: Female

DRUGS (9)
  1. XYREM (500 MILLIGRAM/MILLILITERS, SOLUTION) (SODIUM OXYBATE) [Suspect]
     Indication: NARCOLEPSY
     Route: 048
     Dates: start: 20130417, end: 2013
  2. ARIPIPRAZOLE [Suspect]
     Indication: PRODUCT USED FOR UNKNOWN INDICATION
     Dates: start: 201306, end: 201306
  3. DESVENLAFAXINE [Suspect]
     Indication: PRODUCT USED FOR UNKNOWN INDICATION
     Dates: start: 201306, end: 201306
  4. ESCITALOPRAM OXALATE [Concomitant]
  5. BISOPROLOL [Concomitant]
  6. RISPERIDONE [Concomitant]
  7. ARMODAFINIL [Concomitant]
  8. ORAL CONTRACEPTIVE [Concomitant]
  9. VITAMINS [Concomitant]

REACTIONS (17)
  - Panic attack [None]
  - Dyspnoea [None]
  - Suicidal ideation [None]
  - Depression [None]
  - Condition aggravated [None]
  - Crying [None]
  - Insomnia [None]
  - Blood pressure abnormal [None]
  - Muscle twitching [None]
  - Vertigo [None]
  - Anger [None]
  - Anxiety [None]
  - Dizziness [None]
  - Nausea [None]
  - Fall [None]
  - Fatigue [None]
  - Abnormal dreams [None]
